FAERS Safety Report 9127080 (Version 1)
Quarter: 2013Q1

REPORT INFORMATION
  Report Type: Spontaneous
  Country: US (occurrence: US)
  Receive Date: 20130125
  Receipt Date: 20130125
  Transmission Date: 20140127
  Serious: Yes (Other)
  Sender: FDA-Public Use
  Company Number: US-ELI_LILLY_AND_COMPANY-US201301006095

PATIENT
  Sex: Male

DRUGS (5)
  1. HUMULIN REGULAR [Suspect]
     Indication: DIABETES MELLITUS
     Dosage: 35 U, PRN
     Dates: start: 2011
  2. HUMULIN REGULAR [Suspect]
     Dosage: 35 U, PRN
     Dates: start: 2011
  3. HUMALOG LISPRO [Suspect]
     Indication: DIABETES MELLITUS
     Dosage: UNK UNK, PRN
     Dates: start: 2011
  4. HUMALOG LISPRO [Suspect]
     Dosage: UNK, PRN
  5. LANTUS [Concomitant]

REACTIONS (3)
  - Blood glucose increased [Unknown]
  - Blood glucose decreased [Unknown]
  - Back disorder [Unknown]
